FAERS Safety Report 7876121-8 (Version None)
Quarter: 2011Q4

REPORT INFORMATION
  Report Type: 
  Country: None (occurrence: None)
  Receive Date: 20111031
  Receipt Date: 20111024
  Transmission Date: 20120403
  Serious: Yes (Hospitalization)
  Sender: FDA-Public Use
  Company Number: DE-ABBOTT-11P-062-0868024-00

PATIENT
  Age: 45 Year
  Sex: Female
  Weight: 109 kg

DRUGS (8)
  1. RAMIPRIL [Concomitant]
     Route: 048
     Dates: start: 20110831
  2. BICANORM [Concomitant]
     Dosage: THREE TIMES A DAY
     Dates: start: 20110810
  3. BICANORM [Concomitant]
     Indication: PRODUCT USED FOR UNKNOWN INDICATION
     Dosage: 3 TIMES DAILY
     Route: 048
     Dates: start: 20111008, end: 20111010
  4. THYRONAJOD 50 [Concomitant]
     Indication: PRODUCT USED FOR UNKNOWN INDICATION
     Dosage: ONCE DAILY
     Route: 048
     Dates: start: 20110820
  5. CALCI GRY [Concomitant]
     Indication: PRODUCT USED FOR UNKNOWN INDICATION
     Route: 048
     Dates: start: 20110822
  6. RAMIPRIL [Concomitant]
     Indication: PRODUCT USED FOR UNKNOWN INDICATION
     Route: 048
     Dates: start: 20110113, end: 20110820
  7. EIUS ALPHA [Concomitant]
     Indication: PRODUCT USED FOR UNKNOWN INDICATION
     Route: 048
     Dates: start: 20110820
  8. ZEMPLAR [Suspect]
     Indication: RENAL FAILURE CHRONIC
     Route: 042
     Dates: start: 20110513, end: 20110820

REACTIONS (1)
  - PARATHYROIDECTOMY [None]
